FAERS Safety Report 19483628 (Version 1)
Quarter: 2021Q3

REPORT INFORMATION
  Report Type: Spontaneous
  Country: US (occurrence: US)
  Receive Date: 20210701
  Receipt Date: 20210701
  Transmission Date: 20211014
  Serious: No
  Sender: FDA-Public Use
  Company Number: US-ROCHE-2600553

PATIENT
  Sex: Female
  Weight: 48.1 kg

DRUGS (5)
  1. BIJUVA [Suspect]
     Active Substance: ESTRADIOL\PROGESTERONE
     Route: 048
     Dates: start: 202004
  2. CAFFEINE. [Suspect]
     Active Substance: CAFFEINE
     Indication: PRODUCT USED FOR UNKNOWN INDICATION
     Dosage: 1 CUP OF COFFEE DAILY
     Route: 065
     Dates: start: 2020
  3. IBUPROFEN. [Concomitant]
     Active Substance: IBUPROFEN
  4. CLONAZEPAM. [Suspect]
     Active Substance: CLONAZEPAM
     Indication: NERVOUSNESS
     Route: 065
     Dates: start: 202003
  5. BIJUVA [Suspect]
     Active Substance: ESTRADIOL\PROGESTERONE
     Indication: MENOPAUSE
     Dosage: 1/100 MG
     Route: 048
     Dates: start: 2019, end: 202004

REACTIONS (5)
  - Breast discomfort [Not Recovered/Not Resolved]
  - Drug interaction [Unknown]
  - Breast tenderness [Not Recovered/Not Resolved]
  - Nervousness [Unknown]
  - Breast pain [Not Recovered/Not Resolved]
